FAERS Safety Report 9470045 (Version 3)
Quarter: 2013Q3

REPORT INFORMATION
  Report Type: Spontaneous
  Country: JP (occurrence: JP)
  Receive Date: 20130822
  Receipt Date: 20130903
  Transmission Date: 20140515
  Serious: Yes (Hospitalization)
  Sender: FDA-Public Use
  Company Number: JP-AMGEN-JPNSP2013059155

PATIENT
  Age: 79 Year
  Sex: Female
  Weight: 49 kg

DRUGS (15)
  1. RANMARK [Suspect]
     Indication: PLASMA CELL MYELOMA
     Dosage: 120 MG, Q6MO
     Route: 058
     Dates: start: 20130502, end: 20130807
  2. VELCADE [Suspect]
     Indication: PLASMA CELL MYELOMA
     Dosage: 1.5 MG, UNK
     Route: 058
     Dates: start: 20130318, end: 20130806
  3. LENADEX [Concomitant]
     Indication: PLASMA CELL MYELOMA
     Dosage: 20 MG, QD
     Route: 048
     Dates: start: 20130312, end: 20130807
  4. LIPITOR [Concomitant]
     Indication: DYSLIPIDAEMIA
     Dosage: 10 MG, QD
     Route: 048
  5. NESINA [Concomitant]
     Indication: DIABETES MELLITUS
     Dosage: 25 MG, QD
     Route: 048
  6. MICARDIS [Concomitant]
     Indication: HYPERTENSION
     Dosage: 40 MG, QD
     Route: 048
  7. NATRIX [Concomitant]
     Indication: HYPERTENSION
     Dosage: 0.5 MG, QD
     Route: 048
  8. BAKTAR [Concomitant]
     Indication: PROPHYLAXIS
     Dosage: 1 DF, QD
     Route: 048
     Dates: start: 20130315
  9. ITRIZOLE [Concomitant]
     Indication: PROPHYLAXIS
     Dosage: 100 MG, QD
     Route: 048
     Dates: start: 20130315
  10. ZOVIRAX                            /00587301/ [Concomitant]
     Indication: PROPHYLAXIS
     Dosage: 200 MG, QD
     Route: 048
     Dates: start: 20130315
  11. EDIROL [Concomitant]
     Indication: PROPHYLAXIS
     Dosage: 0.75 MUG, QD
     Route: 048
     Dates: start: 20130503
  12. ASPARA-CA [Concomitant]
     Indication: PROPHYLAXIS
     Dosage: 200 MG, QD
     Route: 048
     Dates: start: 20130503
  13. LYRICA [Concomitant]
     Indication: PLASMA CELL MYELOMA
     Dosage: 75 MG, QD
     Route: 048
  14. LOXONIN [Concomitant]
     Indication: PLASMA CELL MYELOMA
     Dosage: 60 MG, TID
     Route: 048
  15. MYONAL [Concomitant]
     Indication: PLASMA CELL MYELOMA
     Dosage: 50 MG, TID
     Route: 048

REACTIONS (1)
  - Liver disorder [Recovering/Resolving]
